FAERS Safety Report 18561462 (Version 1)
Quarter: 2020Q4

REPORT INFORMATION
  Report Type: Spontaneous
  Country: US (occurrence: US)
  Receive Date: 20201130
  Receipt Date: 20201130
  Transmission Date: 20210114
  Serious: No
  Sender: FDA-Public Use
  Company Number: US-ROCHE-2396833

PATIENT

DRUGS (1)
  1. HERCEPTIN [Suspect]
     Active Substance: TRASTUZUMAB
     Indication: BREAST CANCER
     Dosage: 2 MG PER KILOGRAM THAN 6 MG PER KILOGRAM
     Route: 065

REACTIONS (3)
  - Chills [Unknown]
  - Dyspnoea [Unknown]
  - Flushing [Unknown]
